FAERS Safety Report 17436872 (Version 3)
Quarter: 2020Q1

REPORT INFORMATION
  Report Type: Report from Study
  Country: DE (occurrence: DE)
  Receive Date: 20200219
  Receipt Date: 20200228
  Transmission Date: 20200409
  Serious: Yes (Hospitalization)
  Sender: FDA-Public Use
  Company Number: DE-ROCHE-2546901

PATIENT
  Age: 47 Year
  Sex: Male
  Weight: 77 kg

DRUGS (55)
  1. OCRELIZUMAB. [Suspect]
     Active Substance: OCRELIZUMAB
     Dosage: OLE WEEK 48
     Route: 042
     Dates: start: 20141216, end: 20141216
  2. OCRELIZUMAB. [Suspect]
     Active Substance: OCRELIZUMAB
     Dosage: OLE WEEK 264
     Route: 042
     Dates: start: 20190204, end: 20190204
  3. ANGOCIN [ARMORACIA RUSTICANA;TROPAEOLUM MAJUS] [Concomitant]
     Indication: INFECTION PROPHYLAXIS
     Route: 065
     Dates: start: 201908, end: 20190830
  4. PIPERACILLIN AND TAZOBACTAM [Concomitant]
     Active Substance: PIPERACILLIN SODIUM\TAZOBACTAM SODIUM
     Indication: URINARY TRACT INFECTION
     Route: 065
     Dates: start: 20191101, end: 20191107
  5. DEKRISTOL [Concomitant]
     Active Substance: CHOLECALCIFEROL
     Route: 065
     Dates: start: 20141205, end: 20180403
  6. METHYLPREDNISOLONE. [Concomitant]
     Active Substance: METHYLPREDNISOLONE
     Indication: PREMEDICATION
     Dosage: SUBSEQUENT DOSES ON 02/MAR/2012, 03/AUG/2012, 18/JAN/2013, 05/JUL/2013, 14/JAN/2014, 28/JAN/2014, 30
     Route: 065
     Dates: start: 20120217, end: 20120217
  7. OCRELIZUMAB. [Suspect]
     Active Substance: OCRELIZUMAB
     Dosage: OLE WEEK 24
     Route: 042
     Dates: start: 20140630, end: 20140630
  8. OCRELIZUMAB. [Suspect]
     Active Substance: OCRELIZUMAB
     Dosage: OLE WEEK 288
     Route: 042
     Dates: start: 20190724, end: 20190724
  9. PROPANOLOL [PROPRANOLOL] [Concomitant]
     Active Substance: PROPRANOLOL HYDROCHLORIDE
     Route: 065
     Dates: start: 20190807
  10. TOPIRAMAT [Concomitant]
     Active Substance: TOPIRAMATE
     Indication: ATAXIA
     Route: 065
     Dates: start: 20190807, end: 20190829
  11. TOVIAZ [Concomitant]
     Active Substance: FESOTERODINE FUMARATE
     Indication: MICTURITION URGENCY
     Route: 065
     Dates: start: 20190807
  12. FOSFOMYCIN [Concomitant]
     Active Substance: FOSFOMYCIN
     Indication: URINARY TRACT INFECTION
     Route: 065
     Dates: start: 20200111, end: 20200111
  13. PANTOPRAZOLE [Concomitant]
     Active Substance: PANTOPRAZOLE
     Route: 065
     Dates: start: 20190807, end: 20190809
  14. CIPROFLOXACIN. [Concomitant]
     Active Substance: CIPROFLOXACIN
     Indication: URINARY TRACT INFECTION
     Route: 065
     Dates: start: 20171010, end: 20171015
  15. DIMETINDENE MALEATE [Concomitant]
     Active Substance: DIMETHINDENE MALEATE
     Indication: PREMEDICATION
     Dosage: SUBSEQUENT DOSES ON 02/MAR/2012, 03/AUG/2012, 18/JAN/2013, 05/JUL/2013, 14/JAN/2014, 28/JAN/2014, 30
     Route: 065
     Dates: start: 20120217, end: 20120217
  16. OCRELIZUMAB. [Suspect]
     Active Substance: OCRELIZUMAB
     Dosage: WEEK 48
     Route: 042
     Dates: start: 20130118, end: 20130118
  17. DESLORATADINE. [Concomitant]
     Active Substance: DESLORATADINE
     Indication: RHINITIS ALLERGIC
     Route: 065
     Dates: start: 20170612
  18. PANTOPRAZOLE [Concomitant]
     Active Substance: PANTOPRAZOLE
     Route: 065
     Dates: start: 20190819, end: 20190821
  19. CERTOPARIN SODIUM [Concomitant]
     Active Substance: CERTOPARIN SODIUM
     Indication: THROMBOSIS PROPHYLAXIS
     Route: 065
     Dates: start: 201908, end: 20190901
  20. FRAGMIN P [Concomitant]
     Active Substance: DALTEPARIN SODIUM
     Indication: THROMBOSIS PROPHYLAXIS
     Route: 065
     Dates: start: 20130822, end: 20130824
  21. CIPROFLOXACIN. [Concomitant]
     Active Substance: CIPROFLOXACIN
     Route: 065
     Dates: start: 20191009, end: 20191010
  22. OCRELIZUMAB. [Suspect]
     Active Substance: OCRELIZUMAB
     Dosage: OLE WEEK 2
     Route: 042
     Dates: start: 20140128, end: 20140128
  23. OCRELIZUMAB. [Suspect]
     Active Substance: OCRELIZUMAB
     Dosage: OLE WEEK 72
     Route: 042
     Dates: start: 20150603, end: 20150603
  24. OCRELIZUMAB. [Suspect]
     Active Substance: OCRELIZUMAB
     Dosage: OLE WEEK 120
     Route: 042
     Dates: start: 20160428, end: 20160428
  25. PROPANOLOL [PROPRANOLOL] [Concomitant]
     Active Substance: PROPRANOLOL HYDROCHLORIDE
     Indication: ATAXIA
     Route: 065
     Dates: start: 201908
  26. FOSFOMYCIN [Concomitant]
     Active Substance: FOSFOMYCIN
     Indication: CYSTITIS
     Route: 065
     Dates: start: 20190520, end: 20190520
  27. CIPROFLOXACIN. [Concomitant]
     Active Substance: CIPROFLOXACIN
     Route: 065
     Dates: start: 20200109
  28. OCRELIZUMAB. [Suspect]
     Active Substance: OCRELIZUMAB
     Dosage: WEEK 24
     Route: 042
     Dates: start: 20120803, end: 20120803
  29. PLACEBO [Suspect]
     Active Substance: UNSPECIFIED INGREDIENT
     Indication: RELAPSING-REMITTING MULTIPLE SCLEROSIS
     Route: 058
     Dates: start: 20120217, end: 20140110
  30. OCRELIZUMAB. [Suspect]
     Active Substance: OCRELIZUMAB
     Dosage: OLE WEEK 192
     Route: 042
     Dates: start: 20170921, end: 20170921
  31. OCRELIZUMAB. [Suspect]
     Active Substance: OCRELIZUMAB
     Dosage: OLE WEEK 216
     Route: 042
     Dates: start: 20180306, end: 20180306
  32. SELEN [SELENIUM] [Concomitant]
     Indication: NUTRITIONAL SUPPLEMENTATION
     Route: 065
     Dates: start: 201001, end: 20110831
  33. FRAGMIN P [Concomitant]
     Active Substance: DALTEPARIN SODIUM
     Route: 065
     Dates: start: 20190807, end: 20190809
  34. DEKRISTOL [Concomitant]
     Active Substance: CHOLECALCIFEROL
     Route: 065
     Dates: start: 20190807
  35. OCRELIZUMAB. [Suspect]
     Active Substance: OCRELIZUMAB
     Indication: RELAPSING-REMITTING MULTIPLE SCLEROSIS
     Dosage: BASELINE WEEK 1
     Route: 042
     Dates: start: 20120217, end: 20120217
  36. OCRELIZUMAB. [Suspect]
     Active Substance: OCRELIZUMAB
     Dosage: WEEK 72
     Route: 042
     Dates: start: 20130705, end: 20130705
  37. OCRELIZUMAB. [Suspect]
     Active Substance: OCRELIZUMAB
     Dosage: OLE WEEK 168
     Route: 042
     Dates: start: 20170403, end: 20170403
  38. VANCOMYCIN [Concomitant]
     Active Substance: VANCOMYCIN
     Indication: ENTERITIS
     Route: 065
     Dates: start: 20191116, end: 20191125
  39. PANTOPRAZOLE [Concomitant]
     Active Substance: PANTOPRAZOLE
     Indication: GASTRITIS PROPHYLAXIS
     Route: 065
     Dates: start: 20130822, end: 20130824
  40. NITROFURANTOIN. [Concomitant]
     Active Substance: NITROFURANTOIN
     Indication: URINARY TRACT INFECTION
     Route: 065
     Dates: start: 20200119, end: 20200125
  41. OCRELIZUMAB. [Suspect]
     Active Substance: OCRELIZUMAB
     Dosage: OLE WEEK 144
     Route: 042
     Dates: start: 20161018, end: 20161018
  42. OCRELIZUMAB. [Suspect]
     Active Substance: OCRELIZUMAB
     Dosage: OLE WEEK 240
     Route: 042
     Dates: start: 20180816, end: 20180816
  43. BACLOFEN. [Concomitant]
     Active Substance: BACLOFEN
     Route: 065
     Dates: start: 20190807
  44. TOPIRAMAT [Concomitant]
     Active Substance: TOPIRAMATE
     Route: 065
     Dates: start: 20190830
  45. TOVIAZ [Concomitant]
     Active Substance: FESOTERODINE FUMARATE
     Indication: BLADDER DYSFUNCTION
     Route: 065
     Dates: start: 20190616
  46. CIPROFLOXACIN. [Concomitant]
     Active Substance: CIPROFLOXACIN
     Route: 065
     Dates: start: 20191220
  47. PARACETAMOL [Concomitant]
     Active Substance: ACETAMINOPHEN
     Indication: PREMEDICATION
     Dosage: SUBSEQUENT DOSES ON 02/MAR/2012, 03/AUG/2012, 18/JAN/2013, 05/JUL/2013, 14/JAN/2014, 28/JAN/2014, 30
     Route: 065
     Dates: start: 20120217
  48. OCRELIZUMAB. [Suspect]
     Active Substance: OCRELIZUMAB
     Dosage: WEEK 2
     Route: 042
     Dates: start: 20120302, end: 20120302
  49. OCRELIZUMAB. [Suspect]
     Active Substance: OCRELIZUMAB
     Indication: RELAPSING-REMITTING MULTIPLE SCLEROSIS
     Dosage: OLE WEEK 0
     Route: 042
     Dates: start: 20140114, end: 20140114
  50. OCRELIZUMAB. [Suspect]
     Active Substance: OCRELIZUMAB
     Dosage: OLE WEEK 96
     Route: 042
     Dates: start: 20151116, end: 20151116
  51. PROPANOLOL [PROPRANOLOL] [Concomitant]
     Active Substance: PROPRANOLOL HYDROCHLORIDE
     Route: 065
     Dates: start: 20190807
  52. SELEN [SELENIUM] [Concomitant]
     Route: 065
     Dates: start: 20150421
  53. ZOPICLONE [Concomitant]
     Active Substance: ZOPICLONE
     Indication: SLEEP DISORDER
     Route: 065
     Dates: start: 201908, end: 201908
  54. CIPROFLOXACIN. [Concomitant]
     Active Substance: CIPROFLOXACIN
     Route: 065
     Dates: start: 20191011, end: 20191015
  55. CEFUROXIME. [Concomitant]
     Active Substance: CEFUROXIME
     Indication: URINARY TRACT INFECTION
     Route: 065
     Dates: start: 20190813, end: 20190822

REACTIONS (1)
  - Multiple sclerosis [Recovered/Resolved]

NARRATIVE: CASE EVENT DATE: 20190807
